FAERS Safety Report 10187429 (Version 2)
Quarter: 2014Q2

REPORT INFORMATION
  Report Type: Spontaneous
  Country: RU (occurrence: RU)
  Receive Date: 20140522
  Receipt Date: 20140602
  Transmission Date: 20141212
  Serious: Yes (Death)
  Sender: FDA-Public Use
  Company Number: RU-BIOMARINAP-RU-2014-103284

PATIENT
  Age: 20 Year
  Sex: Male
  Weight: 34 kg

DRUGS (1)
  1. ALDURAZYME [Suspect]
     Indication: MUCOPOLYSACCHARIDOSIS I
     Dosage: UNK
     Route: 042
     Dates: start: 201201, end: 201404

REACTIONS (5)
  - Death [Fatal]
  - Duodenal ulcer [Unknown]
  - Ulcer haemorrhage [Unknown]
  - Cardiac hypertrophy [Unknown]
  - Lung disorder [Unknown]
